FAERS Safety Report 18193524 (Version 1)
Quarter: 2020Q3

REPORT INFORMATION
  Report Type: Spontaneous
  Country: GB (occurrence: GB)
  Receive Date: 20200825
  Receipt Date: 20200825
  Transmission Date: 20201103
  Serious: Yes (Other)
  Sender: FDA-Public Use
  Company Number: GB-FRESENIUS KABI-FK202008594

PATIENT
  Age: 29 Year
  Sex: Female

DRUGS (1)
  1. OXYTOCIN INJECTION (MANUFACTURER UNKNOWN) [Suspect]
     Active Substance: OXYTOCIN
     Indication: PRODUCT USED FOR UNKNOWN INDICATION
     Route: 065

REACTIONS (6)
  - Palatal oedema [Recovered/Resolved]
  - Tongue oedema [Recovered/Resolved]
  - Hypotension [Recovered/Resolved]
  - Oedema mouth [Recovered/Resolved]
  - Uterine atony [Recovered/Resolved]
  - Acute kidney injury [Recovered/Resolved]
